FAERS Safety Report 8533198-4 (Version None)
Quarter: 2012Q2

REPORT INFORMATION
  Report Type: 
  Country: None (occurrence: None)
  Receive Date: 20120412
  Receipt Date: 20100713
  Transmission Date: 20120825
  Serious: Yes (Other)
  Sender: FDA-Public Use
  Company Number: PHHY2010US42278

PATIENT
  Age: 35 Year
  Sex: Female

DRUGS (1)
  1. CLOZARIL [Suspect]
     Dosage: 300 MG, ORAL
     Route: 048
     Dates: start: 19980713

REACTIONS (4)
  - LEUKOPENIA [None]
  - DYSTONIA [None]
  - NEUTROPHIL COUNT DECREASED [None]
  - WHITE BLOOD CELL COUNT DECREASED [None]
